FAERS Safety Report 19532815 (Version 1)
Quarter: 2021Q3

REPORT INFORMATION
  Report Type: Other
  Country: GB (occurrence: GB)
  Receive Date: 20210713
  Receipt Date: 20210713
  Transmission Date: 20211014
  Serious: Yes (Hospitalization, Other)
  Sender: FDA-Public Use
  Company Number: GB-ASPEN-GLO2021GB005521

PATIENT

DRUGS (1)
  1. DEXAMETHASONE. [Suspect]
     Active Substance: DEXAMETHASONE
     Indication: MENINGIOMA
     Dosage: 4 MG, QD
     Route: 065

REACTIONS (3)
  - Cellulitis [Recovered/Resolved]
  - Necrotising fasciitis [Recovered/Resolved]
  - Streptococcal infection [Recovered/Resolved]
